FAERS Safety Report 7054700-8 (Version None)
Quarter: 2010Q4

REPORT INFORMATION
  Report Type: 
  Country: None (occurrence: None)
  Receive Date: 20101015
  Receipt Date: 20100928
  Transmission Date: 20110411
  Serious: Yes (Other)
  Sender: FDA-Public Use
  Company Number: 2010P1001704

PATIENT
  Age: 31 Year
  Sex: Male

DRUGS (3)
  1. LEVETIRACETAM [Suspect]
     Indication: CONVULSION
     Dosage: 1000 MG;BID;PO ; 1500 MG;BID;PO ; 1500/1000 MG;AM/PM;PO
     Route: 048
  2. DEXAMETHASONE [Concomitant]
  3. PREV MEDS [Concomitant]

REACTIONS (7)
  - CONFUSIONAL STATE [None]
  - CONVULSION [None]
  - DIZZINESS [None]
  - DYSARTHRIA [None]
  - HYPOAESTHESIA [None]
  - HYPOAESTHESIA ORAL [None]
  - PRODUCT SUBSTITUTION ISSUE [None]
